FAERS Safety Report 8886536 (Version 1)
Quarter: 2012Q4

REPORT INFORMATION
  Report Type: 
  Country: JP (occurrence: JP)
  Receive Date: 20121105
  Receipt Date: 20121105
  Transmission Date: 20130627
  Serious: Yes (Death)
  Sender: FDA-Public Use
  Company Number: JP-ELI_LILLY_AND_COMPANY-JP201207008720

PATIENT
  Age: 80 Year
  Sex: Male

DRUGS (1)
  1. FORTEO [Suspect]
     Dosage: UNK
     Route: 058
     Dates: start: 201201

REACTIONS (4)
  - Death [Fatal]
  - Decreased appetite [Not Recovered/Not Resolved]
  - Face oedema [Not Recovered/Not Resolved]
  - Malaise [Unknown]
